FAERS Safety Report 9442281 (Version 2)
Quarter: 2013Q3

REPORT INFORMATION
  Report Type: Spontaneous
  Country: US (occurrence: US)
  Receive Date: 20130806
  Receipt Date: 20130911
  Transmission Date: 20140515
  Serious: Yes (Death)
  Sender: FDA-Public Use
  Company Number: US-AMGEN-USASP2013054104

PATIENT
  Age: 56 Year
  Sex: Female
  Weight: 110.66 kg

DRUGS (6)
  1. SENSIPAR [Suspect]
     Indication: HYPERPARATHYROIDISM SECONDARY
     Dosage: 60 MG, QD
     Route: 048
     Dates: start: 20120117
  2. NOVOLIN [Concomitant]
     Dosage: 40 UNK, UNK
     Dates: start: 20090219, end: 20130520
  3. RENVELA [Concomitant]
     Dosage: 800 MG, UNK
     Dates: start: 20090219, end: 20130520
  4. PYRIDOXINE [Concomitant]
     Dosage: 50 MG, QHS
     Route: 048
     Dates: start: 20090219, end: 20130520
  5. SIMVASTATIN [Concomitant]
     Dosage: 40 MG, QD
     Route: 048
     Dates: start: 20030219, end: 20130520
  6. BABY ASPIRIN [Concomitant]
     Dosage: 40 MG, QD
     Route: 048
     Dates: start: 20090219, end: 20130520

REACTIONS (3)
  - Cardiac failure congestive [Fatal]
  - Diabetes mellitus [Fatal]
  - Renal failure chronic [Fatal]
